FAERS Safety Report 6634723-0 (Version None)
Quarter: 2010Q1

REPORT INFORMATION
  Report Type: 
  Country: None (occurrence: None)
  Receive Date: 20100315
  Receipt Date: 20091002
  Transmission Date: 20100710
  Serious: No
  Sender: FDA-Public Use
  Company Number: US-BAYER-200935960NA

PATIENT
  Age: 48 Year
  Sex: Female
  Weight: 67 kg

DRUGS (2)
  1. ULTRAVIST 150 [Suspect]
     Indication: COMPUTERISED TOMOGRAM ABDOMEN
     Dosage: TOTAL DAILY DOSE: 100 ML  UNIT DOSE: 200 ML
     Route: 042
     Dates: start: 20091002, end: 20091002
  2. VOLUVEN [Concomitant]
     Route: 048
     Dates: start: 20091002, end: 20091002

REACTIONS (3)
  - EAR CONGESTION [None]
  - NASAL CONGESTION [None]
  - THROAT TIGHTNESS [None]
